FAERS Safety Report 4723760-9 (Version None)
Quarter: 2005Q3

REPORT INFORMATION
  Report Type: 
  Country: None (occurrence: None)
  Receive Date: 20050720
  Receipt Date: 20050720
  Transmission Date: 20060218
  Serious: Yes (Other)
  Sender: FDA-Public Use
  Company Number: None

PATIENT
  Age: 54 Year
  Sex: Female
  Weight: 72.1219 kg

DRUGS (4)
  1. OXYCONTIN [Suspect]
     Indication: INTERVERTEBRAL DISC DISORDER
     Dosage: 80 MG PO BID
     Route: 048
     Dates: start: 20050601
  2. OXYCONTIN [Suspect]
     Indication: OSTEOARTHRITIS
     Dosage: 80 MG PO BID
     Route: 048
     Dates: start: 20050601
  3. OXYCONTIN [Suspect]
     Indication: PAIN
     Dosage: 80 MG PO BID
     Route: 048
     Dates: start: 20050601
  4. LORTAB 10/325 [Concomitant]

REACTIONS (7)
  - ABDOMINAL PAIN [None]
  - DIARRHOEA [None]
  - DRUG EFFECT DECREASED [None]
  - HYPERHIDROSIS [None]
  - NAUSEA [None]
  - THERAPEUTIC RESPONSE UNEXPECTED WITH DRUG SUBSTITUTION [None]
  - VOMITING [None]
